FAERS Safety Report 21995851 (Version 2)
Quarter: 2023Q1

REPORT INFORMATION
  Report Type: Report from Study
  Country: US (occurrence: US)
  Receive Date: 20230215
  Receipt Date: 20230315
  Transmission Date: 20230418
  Serious: No
  Sender: FDA-Public Use
  Company Number: US-BAUSCH-BL-2023-002545

PATIENT
  Age: 50 Year
  Sex: Female
  Weight: 82.628 kg

DRUGS (25)
  1. XIFAXAN [Suspect]
     Active Substance: RIFAXIMIN
     Indication: Product used for unknown indication
     Route: 048
     Dates: start: 20181005
  2. DICYCLOMINE HYDROCHLORIDE [Concomitant]
     Active Substance: DICYCLOMINE HYDROCHLORIDE
     Indication: Irritable bowel syndrome
     Route: 048
  3. FAMOTIDINE [Concomitant]
     Active Substance: FAMOTIDINE
     Indication: Product used for unknown indication
     Dosage: 1/2 PRIOR TO MEALS TWICE A DAY
     Route: 048
  4. PEPCID [Concomitant]
     Active Substance: FAMOTIDINE
     Indication: Product used for unknown indication
     Dosage: 1/2 PRIOR TO MEALS TWICE A DAY
     Route: 048
  5. ONDANSETRON [Concomitant]
     Active Substance: ONDANSETRON
     Indication: Nausea
     Dosage: 4-6 HOURS AS NEEDED
     Route: 048
  6. ONDANSETRON [Concomitant]
     Active Substance: ONDANSETRON
     Indication: Vomiting
  7. DEPAKOTE [Concomitant]
     Active Substance: DIVALPROEX SODIUM
     Indication: Product used for unknown indication
     Dosage: AT NIGHT
     Route: 048
  8. XANAX [Concomitant]
     Active Substance: ALPRAZOLAM
     Indication: Product used for unknown indication
  9. DICLOFENAC [Concomitant]
     Active Substance: DICLOFENAC
     Indication: Product used for unknown indication
  10. PROAIR HFA [Concomitant]
     Active Substance: ALBUTEROL SULFATE
     Indication: Product used for unknown indication
     Dosage: 108 (90 BASE) MCG/ACT DAILY AS NEEDED
  11. ALBUTEROL SULFATE [Concomitant]
     Active Substance: ALBUTEROL SULFATE
     Indication: Product used for unknown indication
     Dosage: (2.5 MG/3ML) 0.083% AS NEEDED
  12. TROKENDI XR [Concomitant]
     Active Substance: TOPIRAMATE
     Indication: Product used for unknown indication
  13. TROKENDI XR [Concomitant]
     Active Substance: TOPIRAMATE
  14. TIROSINT [Concomitant]
     Active Substance: LEVOTHYROXINE SODIUM
     Indication: Product used for unknown indication
     Route: 048
  15. VRAYLAR [Concomitant]
     Active Substance: CARIPRAZINE
     Indication: Product used for unknown indication
  16. VRAYLAR [Concomitant]
     Active Substance: CARIPRAZINE
  17. KLONOPIN [Concomitant]
     Active Substance: CLONAZEPAM
     Indication: Product used for unknown indication
     Dosage: AT NIGHT
  18. KLONOPIN [Concomitant]
     Active Substance: CLONAZEPAM
     Dosage: 1 IN 8 HOUR AS NEEDED
  19. AJOVY [Concomitant]
     Active Substance: FREMANEZUMAB-VFRM
     Indication: Product used for unknown indication
     Dosage: 225 MG/1.5 ML
  20. DICLOFENAC SODIUM [Concomitant]
     Active Substance: DICLOFENAC SODIUM
     Indication: Product used for unknown indication
     Route: 048
  21. NORFLEX [Concomitant]
     Active Substance: ORPHENADRINE CITRATE
     Indication: Product used for unknown indication
     Route: 048
  22. AMERGE [Concomitant]
     Active Substance: NARATRIPTAN HYDROCHLORIDE
     Indication: Migraine
  23. UBRELVY [Concomitant]
     Active Substance: UBROGEPANT
     Indication: Migraine
  24. PLAQUENIL [Concomitant]
     Active Substance: HYDROXYCHLOROQUINE SULFATE
     Indication: Product used for unknown indication
     Route: 048
  25. OZEMPIC [Concomitant]
     Active Substance: SEMAGLUTIDE
     Indication: Product used for unknown indication
     Dosage: (1MG/DOSE) 4MG/3ML
     Route: 058

REACTIONS (11)
  - Nephrolithiasis [Unknown]
  - Haemorrhoids [Unknown]
  - Gastric polyps [Unknown]
  - Gastrointestinal disorder [Recovering/Resolving]
  - Condition aggravated [Recovering/Resolving]
  - COVID-19 [Recovered/Resolved]
  - Cystitis [Unknown]
  - Dysphagia [Unknown]
  - Haematuria [Unknown]
  - Malaise [Recovered/Resolved]
  - Abdominal distension [Unknown]

NARRATIVE: CASE EVENT DATE: 20220501
